FAERS Safety Report 5930016-5 (Version None)
Quarter: 2008Q4

REPORT INFORMATION
  Report Type: 
  Country: None (occurrence: None)
  Receive Date: 20081021
  Receipt Date: 20081010
  Transmission Date: 20090506
  Serious: Yes (Hospitalization, Other)
  Sender: FDA-Public Use
  Company Number: JPI-P-005018

PATIENT
  Age: 52 Year
  Sex: Female
  Weight: 71.6683 kg

DRUGS (13)
  1. XYREM [Suspect]
     Indication: FIBROMYALGIA
     Dosage: 9 GM (4.5 GM, 2 IN 1 D), ORAL
     Route: 048
     Dates: start: 20080101, end: 20080901
  2. XYREM [Suspect]
     Indication: SLEEP DISORDER
     Dosage: 9 GM (4.5 GM, 2 IN 1 D), ORAL
     Route: 048
     Dates: start: 20080101, end: 20080901
  3. METOPROLOL SUCCINATE [Concomitant]
  4. AMLODIPINE BESYLATE [Concomitant]
  5. VALSARTAN [Concomitant]
  6. SPIRONOLACTONE [Concomitant]
  7. OXYCODONE HCL [Concomitant]
  8. ESCITALOPRAM OXALATE (ESCITALOPRAM OXALATE) [Concomitant]
  9. CLONAZEPAM [Concomitant]
  10. HYDROXYZINE [Concomitant]
  11. CALCITRIOL [Concomitant]
  12. PREDNISONE [Concomitant]
  13. ACETYLSALICYLIC ACID SRT [Concomitant]

REACTIONS (7)
  - AORTIC DISSECTION [None]
  - CONVULSION [None]
  - ENURESIS [None]
  - GASTROENTERITIS [None]
  - HEAD INJURY [None]
  - LOSS OF CONSCIOUSNESS [None]
  - MEMORY IMPAIRMENT [None]
